FAERS Safety Report 9534970 (Version 1)
Quarter: 2013Q3

REPORT INFORMATION
  Report Type: Spontaneous
  Country: US (occurrence: US)
  Receive Date: 20130918
  Receipt Date: 20130918
  Transmission Date: 20140515
  Serious: Yes (Death, Congenital Anomaly)
  Sender: FDA-Public Use
  Company Number: US-PFIZER INC-2013265621

PATIENT
  Age: 1 Day
  Sex: Female

DRUGS (2)
  1. EFFEXOR [Suspect]
     Route: 064
  2. EFFEXOR [Suspect]
     Dosage: UNK
     Route: 063

REACTIONS (3)
  - Maternal exposure during pregnancy [Fatal]
  - Exposure during breast feeding [Fatal]
  - Congenital anomaly [Fatal]
